FAERS Safety Report 7058488-6 (Version None)
Quarter: 2010Q4

REPORT INFORMATION
  Report Type: 
  Country: None (occurrence: None)
  Receive Date: 20101022
  Receipt Date: 20101018
  Transmission Date: 20110411
  Serious: Yes (Hospitalization, Other)
  Sender: FDA-Public Use
  Company Number: CHPA2010US16350

PATIENT
  Age: 78 Year
  Sex: Female
  Weight: 56.689 kg

DRUGS (3)
  1. MYOFLEX ANALGESIC CREME (NCH) [Suspect]
     Indication: MUSCLE SPASMS
     Dosage: UNK, ONCE A DAY AS NEEDED
     Route: 061
  2. MYOFLEX ANALGESIC CREME (NCH) [Suspect]
     Indication: NEUROPATHY PERIPHERAL
  3. MYOFLEX ANALGESIC CREME (NCH) [Suspect]
     Indication: PAIN

REACTIONS (4)
  - CARDIAC DISORDER [None]
  - DIABETES MELLITUS [None]
  - OFF LABEL USE [None]
  - VASCULAR GRAFT [None]
